FAERS Safety Report 24904884 (Version 1)
Quarter: 2025Q1

REPORT INFORMATION
  Report Type: Spontaneous
  Country: GB (occurrence: GB)
  Receive Date: 20250130
  Receipt Date: 20250130
  Transmission Date: 20250409
  Serious: Yes (Other)
  Sender: MERCK
  Company Number: None

PATIENT
  Age: 62 Year

DRUGS (1)
  1. PEMBROLIZUMAB [Suspect]
     Active Substance: PEMBROLIZUMAB
     Indication: Gastric cancer
     Dates: start: 20241004

REACTIONS (1)
  - Cholecystitis [Not Recovered/Not Resolved]

NARRATIVE: CASE EVENT DATE: 20250129
